FAERS Safety Report 7882375-4 (Version None)
Quarter: 2011Q4

REPORT INFORMATION
  Report Type: 
  Country: None (occurrence: None)
  Receive Date: 20111101
  Receipt Date: 20110614
  Transmission Date: 20120403
  Serious: Yes (Other)
  Sender: FDA-Public Use
  Company Number: US-AMGEN-USASP2011030519

PATIENT
  Age: 61 Year
  Sex: Female

DRUGS (4)
  1. ENBREL [Suspect]
     Indication: RHEUMATOID ARTHRITIS
     Dosage: 50 MG, QWK
     Dates: start: 20080101
  2. OMEPRAZOLE [Concomitant]
  3. METHOTREXATE [Concomitant]
  4. SYNTHROID [Concomitant]

REACTIONS (1)
  - HEPATIC ENZYME INCREASED [None]
